FAERS Safety Report 12470575 (Version 1)
Quarter: 2016Q2

REPORT INFORMATION
  Report Type: Spontaneous
  Country: US (occurrence: None)
  Receive Date: 20160615
  Receipt Date: 20160615
  Transmission Date: 20160815
  Serious: No
  Sender: FDA-Public Use
  Company Number: None

PATIENT
  Age: 4 Year
  Sex: Male
  Weight: 19.05 kg

DRUGS (3)
  1. HYLAND^S EARACHE DROPS [Suspect]
     Active Substance: HOMEOPATHICS
     Indication: EAR PAIN
     Dates: start: 20160613, end: 20160614
  2. KIDS MULTI VITAMIN [Concomitant]
  3. PROBIOTIC [Concomitant]
     Active Substance: PROBIOTICS NOS

REACTIONS (1)
  - Hypersomnia [None]

NARRATIVE: CASE EVENT DATE: 20160614
